FAERS Safety Report 7117177-X (Version None)
Quarter: 2010Q4

REPORT INFORMATION
  Report Type: 
  Country: None (occurrence: None)
  Receive Date: 20101122
  Receipt Date: 20101111
  Transmission Date: 20110411
  Serious: Yes (Other)
  Sender: FDA-Public Use
  Company Number: US-PFIZER INC-2010149481

PATIENT
  Age: 56 Year
  Sex: Female
  Weight: 63.502 kg

DRUGS (3)
  1. PREMARIN [Suspect]
     Indication: VULVOVAGINAL DRYNESS
     Dosage: DAILY FOR THE FIRST 2 WEEKS OF THERAPY
     Route: 067
  2. PREMARIN [Suspect]
     Dosage: 0.625 MG, UNK
     Route: 067
  3. LANSOPRAZOLE [Concomitant]
     Indication: GASTROOESOPHAGEAL REFLUX DISEASE

REACTIONS (3)
  - DRUG INEFFECTIVE [None]
  - INCORRECT DOSE ADMINISTERED [None]
  - PATELLOFEMORAL PAIN SYNDROME [None]
